FAERS Safety Report 7201213-6 (Version None)
Quarter: 2010Q4

REPORT INFORMATION
  Report Type: 
  Country: None (occurrence: None)
  Receive Date: 20101227
  Receipt Date: 20101227
  Transmission Date: 20110411
  Serious: Yes (Hospitalization)
  Sender: FDA-Public Use
  Company Number: None

PATIENT
  Sex: Female
  Weight: 80 kg

DRUGS (2)
  1. CYCLOPHOSPHAMIDE [Suspect]
     Dosage: 1200 MG
  2. FLUDARABINE PHOSPHATE [Suspect]
     Dosage: 200MG RECEIVED 40MG PER DAY

REACTIONS (3)
  - ACUTE MYELOID LEUKAEMIA [None]
  - CHRONIC LYMPHOCYTIC LEUKAEMIA TRANSFORMATION [None]
  - MULTI-ORGAN FAILURE [None]
